FAERS Safety Report 6816252-4 (Version None)
Quarter: 2010Q2

REPORT INFORMATION
  Report Type: 
  Country: None (occurrence: None)
  Receive Date: 20100630
  Receipt Date: 20100621
  Transmission Date: 20101027
  Serious: Yes (Hospitalization)
  Sender: FDA-Public Use
  Company Number: 2010US001761

PATIENT
  Age: 75 Year
  Sex: Male

DRUGS (2)
  1. VESICARE [Suspect]
     Indication: HYPERTONIC BLADDER
     Dosage: 10 MG, D, ORAL
     Route: 048
     Dates: start: 20080205
  2. DESMOPRESSIN ACETATE [Concomitant]

REACTIONS (2)
  - ASTHENIA [None]
  - BLOOD SODIUM DECREASED [None]
